FAERS Safety Report 8999169 (Version 2)
Quarter: 2013Q1

REPORT INFORMATION
  Report Type: Report from Study
  Country: US (occurrence: US)
  Receive Date: 20130103
  Receipt Date: 20130221
  Transmission Date: 20140127
  Serious: Yes (Hospitalization)
  Sender: FDA-Public Use
  Company Number: US-NAPPMUNDI-USA-2012-0097264

PATIENT
  Sex: Male
  Weight: 102.49 kg

DRUGS (1)
  1. OXYCONTIN (NDA 22-272) [Suspect]
     Indication: PRODUCT USED FOR UNKNOWN INDICATION
     Dosage: 20 MG,  2TO 3 TABLETS EVERY 12 HOURS
     Route: 048

REACTIONS (1)
  - Cardiac failure congestive [Recovered/Resolved]
